FAERS Safety Report 5197889-8 (Version None)
Quarter: 2007Q1

REPORT INFORMATION
  Report Type: 
  Country: None (occurrence: None)
  Receive Date: 20070103
  Receipt Date: 20061220
  Transmission Date: 20070707
  Serious: Yes (Hospitalization, Congenital Anomaly)
  Sender: FDA-Public Use
  Company Number: BR-SHR-BR-2006-003629

PATIENT
  Age: 1 Day
  Sex: Male
  Weight: 1.7 kg

DRUGS (1)
  1. BETASERON [Suspect]
     Indication: RELAPSING-REMITTING MULTIPLE SCLEROSIS
     Dosage: 500 A?G, EVERY 2D
     Route: 058
     Dates: start: 20040730, end: 20050902

REACTIONS (7)
  - CAESAREAN SECTION [None]
  - CYTOMEGALOVIRUS INFECTION [None]
  - DANDY-WALKER SYNDROME [None]
  - DRUG EXPOSURE DURING PREGNANCY [None]
  - PREMATURE BABY [None]
  - SMALL FOR DATES BABY [None]
  - TOXOPLASMOSIS [None]
